FAERS Safety Report 23058184 (Version 4)
Quarter: 2024Q2

REPORT INFORMATION
  Report Type: Spontaneous
  Country: DE (occurrence: DE)
  Receive Date: 20231012
  Receipt Date: 20240415
  Transmission Date: 20240716
  Serious: Yes (Other)
  Sender: FDA-Public Use
  Company Number: DE-ROCHE-2315936

PATIENT
  Age: 71 Year
  Sex: Female

DRUGS (12)
  1. MARCUMAR [Suspect]
     Active Substance: PHENPROCOUMON
     Indication: Product used for unknown indication
     Dosage: ACCORDING TO LABORATORY VALUE, UNK DEPENDING OF VALUE.
     Route: 065
  2. OCREVUS [Suspect]
     Active Substance: OCRELIZUMAB
     Indication: Primary progressive multiple sclerosis
     Route: 042
     Dates: start: 20190201
  3. OCREVUS [Suspect]
     Active Substance: OCRELIZUMAB
     Route: 042
     Dates: start: 20190215, end: 20190516
  4. OCREVUS [Suspect]
     Active Substance: OCRELIZUMAB
     Route: 042
     Dates: start: 20190516
  5. METAMIZOLE [Concomitant]
     Active Substance: METAMIZOLE
     Dosage: AS REQUIRED?20-30 DROPS AS REQUIRED
  6. VITAMIN D3-HEVERT [Concomitant]
     Route: 065
  7. GABAPENTIN [Concomitant]
     Active Substance: GABAPENTIN
  8. GABAPENTIN [Concomitant]
     Active Substance: GABAPENTIN
  9. SPIRONOLACTONE [Concomitant]
     Active Substance: SPIRONOLACTONE
     Route: 065
  10. XIPAMIDE [Concomitant]
     Active Substance: XIPAMIDE
     Route: 065
  11. NABIXIMOLS [Concomitant]
     Active Substance: NABIXIMOLS
  12. BACLOFEN [Concomitant]
     Active Substance: BACLOFEN
     Dosage: 0.5-0.5-0.5

REACTIONS (12)
  - Ocular hyperaemia [Recovering/Resolving]
  - Pain in extremity [Not Recovered/Not Resolved]
  - Rhinorrhoea [Recovered/Resolved]
  - Epistaxis [Not Recovered/Not Resolved]
  - Arthralgia [Not Recovered/Not Resolved]
  - Asthenia [Not Recovered/Not Resolved]
  - Ear haemorrhage [Recovered/Resolved]
  - Gait disturbance [Not Recovered/Not Resolved]
  - Dry throat [Recovered/Resolved]
  - Muscle spasticity [Recovering/Resolving]
  - Nasal dryness [Recovered/Resolved]
  - Eye haemorrhage [Recovering/Resolving]

NARRATIVE: CASE EVENT DATE: 20190201
